FAERS Safety Report 7686637-5 (Version None)
Quarter: 2011Q3

REPORT INFORMATION
  Report Type: 
  Country: None (occurrence: None)
  Receive Date: 20110816
  Receipt Date: 20110816
  Transmission Date: 20111222
  Serious: Yes (Other)
  Sender: FDA-Public Use
  Company Number: None

PATIENT
  Age: 33 Year
  Sex: Male
  Weight: 60.327 kg

DRUGS (1)
  1. VANCOMYCIN [Suspect]
     Indication: IMPLANT SITE INFECTION
     Dosage: 1500 MG
     Route: 040
     Dates: start: 20110727, end: 20110730

REACTIONS (2)
  - NEPHRITIS ALLERGIC [None]
  - BLOOD CREATININE INCREASED [None]
